FAERS Safety Report 8881965 (Version 1)
Quarter: 2012Q4

REPORT INFORMATION
  Report Type: 
  Country: ES (occurrence: ES)
  Receive Date: 20121101
  Receipt Date: 20121101
  Transmission Date: 20130627
  Serious: Yes (Hospitalization, Other)
  Sender: FDA-Public Use
  Company Number: PHHY2012ES098052

PATIENT
  Age: 90 Year
  Sex: Female

DRUGS (3)
  1. SINTROM [Suspect]
     Indication: ATRIAL FIBRILLATION
     Dosage: 1 mg, daily
     Route: 048
     Dates: start: 2011, end: 20120804
  2. AMOXICILLIN + CLAVULANATE POTASSIUM [Interacting]
     Indication: URINARY TRACT INFECTION
     Dates: start: 2012
  3. OMEPRAZOLE [Concomitant]

REACTIONS (4)
  - Craniocerebral injury [Unknown]
  - Cephalhaematoma [Unknown]
  - Drug interaction [Unknown]
  - International normalised ratio increased [Unknown]
